FAERS Safety Report 18292645 (Version 2)
Quarter: 2020Q4

REPORT INFORMATION
  Report Type: Report from Study
  Country: US (occurrence: US)
  Receive Date: 20200921
  Receipt Date: 20201008
  Transmission Date: 20210113
  Serious: No
  Sender: FDA-Public Use
  Company Number: NVSC2020US256755

PATIENT
  Age: 90 Year
  Sex: Female
  Weight: 45.36 kg

DRUGS (4)
  1. TIMOLOL. [Concomitant]
     Active Substance: TIMOLOL
     Indication: GLAUCOMA
     Dosage: 1 DRP, BID (1 DROP TWICE A DAY FOR 10 YEARS)
     Route: 065
  2. LUMIGAN [Concomitant]
     Active Substance: BIMATOPROST
     Indication: GLAUCOMA
     Dosage: 1 DRP, QD (1 DROP ONCE A DAY, BEEN ON IT FOR 10 YEARS)
     Route: 065
  3. XIIDRA [Suspect]
     Active Substance: LIFITEGRAST
     Indication: DRY EYE
     Dosage: 1 DRP, ONCE2SDO
     Route: 047
     Dates: start: 201607, end: 201607
  4. THERATEARS [Concomitant]
     Active Substance: CARBOXYMETHYLCELLULOSE SODIUM
     Indication: DRY EYE
     Dosage: 4 TIMES A DAY FOR 10 YEARS
     Route: 065

REACTIONS (2)
  - Vision blurred [Not Recovered/Not Resolved]
  - Drug ineffective [Unknown]

NARRATIVE: CASE EVENT DATE: 201607
